FAERS Safety Report 18415780 (Version 1)
Quarter: 2020Q4

REPORT INFORMATION
  Report Type: Spontaneous
  Country: US (occurrence: US)
  Receive Date: 20201022
  Receipt Date: 20201022
  Transmission Date: 20210114
  Serious: Yes (Death)
  Sender: FDA-Public Use
  Company Number: None

PATIENT
  Age: 58 Year
  Sex: Male

DRUGS (18)
  1. KEYTRUDA [Suspect]
     Active Substance: PEMBROLIZUMAB
     Indication: LUNG NEOPLASM MALIGNANT
     Dosage: ?          OTHER FREQUENCY:EVERY 21 DAYS;?
     Route: 042
     Dates: start: 20200802, end: 20201020
  2. GABAPENTIN 300MG [Concomitant]
     Active Substance: GABAPENTIN
     Dates: start: 20200923, end: 20201020
  3. FOLIC ACID 1000MCG [Concomitant]
     Dates: start: 20200707, end: 20201020
  4. ONE TOUCH VERIO [Concomitant]
     Dates: start: 20200609, end: 20201020
  5. ALIMTA 500MG INJ [Concomitant]
     Dates: start: 20200929, end: 20201020
  6. MORPHINE 15MG [Concomitant]
     Active Substance: MORPHINE
     Dates: start: 20200831, end: 20201020
  7. PREDNISONE 10MG [Concomitant]
     Active Substance: PREDNISONE
     Dates: start: 20201010, end: 20201020
  8. ALBUTEROL HFA [Concomitant]
     Active Substance: ALBUTEROL SULFATE
     Dates: start: 20200715, end: 20201020
  9. ATORVASTATIN 20MG [Concomitant]
     Active Substance: ATORVASTATIN
     Dates: start: 20200831, end: 20201020
  10. CYCLOBENZAPRINE 5MG [Concomitant]
     Active Substance: CYCLOBENZAPRINE
     Dates: start: 20200827, end: 20201020
  11. TRAZADONE 50MG [Concomitant]
     Active Substance: TRAZODONE HYDROCHLORIDE
     Dates: start: 20200827, end: 20201020
  12. MORPHINE 30MG [Concomitant]
     Dates: start: 20200929, end: 20201020
  13. GLIMEPIRIDE 1MG [Concomitant]
     Active Substance: GLIMEPIRIDE
     Dates: start: 20200831, end: 20201020
  14. CLOPIDOGREL [Concomitant]
     Active Substance: CLOPIDOGREL BISULFATE
     Dates: start: 20200629, end: 20201020
  15. ALIMTA 100MG INJ [Concomitant]
     Dates: start: 20200927, end: 20201020
  16. KETOROLAC 10MG [Concomitant]
     Dates: start: 20201015, end: 20201020
  17. NYSTATIN 100000 SUS [Concomitant]
     Dates: start: 20200929, end: 20201020
  18. TEMAZEPAM 30MG [Concomitant]
     Active Substance: TEMAZEPAM
     Dates: start: 20200827, end: 20201020

REACTIONS (1)
  - Death [None]

NARRATIVE: CASE EVENT DATE: 20201020
